FAERS Safety Report 12240629 (Version 2)
Quarter: 2016Q2

REPORT INFORMATION
  Report Type: Spontaneous
  Country: JP (occurrence: JP)
  Receive Date: 20160406
  Receipt Date: 20160413
  Transmission Date: 20160815
  Serious: Yes (Other)
  Sender: FDA-Public Use
  Company Number: JP-TAKEDA-2016TJP006296

PATIENT
  Sex: Female

DRUGS (1)
  1. LANSAP [Suspect]
     Active Substance: AMOXICILLIN\CLARITHROMYCIN\LANSOPRAZOLE
     Indication: HELICOBACTER INFECTION
     Dosage: UNK
     Route: 048

REACTIONS (1)
  - Postoperative ileus [Unknown]
